FAERS Safety Report 15232449 (Version 1)
Quarter: 2018Q3

REPORT INFORMATION
  Report Type: Spontaneous
  Country: DE (occurrence: DE)
  Receive Date: 20180802
  Receipt Date: 20180802
  Transmission Date: 20181010
  Serious: Yes (Other)
  Sender: FDA-Public Use
  Company Number: DE-MYLANLABS-2018M1057629

PATIENT
  Age: 30 Year
  Sex: Male

DRUGS (1)
  1. PREDNISOLONE. [Suspect]
     Active Substance: PREDNISOLONE
     Indication: ACUTE GRAFT VERSUS HOST DISEASE
     Dosage: 2 MG/KG
     Route: 065

REACTIONS (3)
  - Dermatopathic lymphadenopathy [Unknown]
  - Cytomegalovirus infection [Unknown]
  - Respiratory tract infection viral [Unknown]
